FAERS Safety Report 5704476-9 (Version None)
Quarter: 2008Q2

REPORT INFORMATION
  Report Type: 
  Country: None (occurrence: None)
  Receive Date: 20080414
  Receipt Date: 20080409
  Transmission Date: 20081010
  Serious: Yes (Other)
  Sender: FDA-Public Use
  Company Number: US-MERCK-0711USA07114

PATIENT
  Age: 70 Year
  Sex: Female
  Weight: 53 kg

DRUGS (1)
  1. FOSAMAX [Suspect]
     Indication: OSTEOPOROSIS PROPHYLAXIS
     Route: 048
     Dates: start: 20000101, end: 20060101

REACTIONS (16)
  - CEREBROVASCULAR ACCIDENT [None]
  - CEREBROVASCULAR DISORDER [None]
  - COLONIC POLYP [None]
  - CONTUSION [None]
  - DIVERTICULUM INTESTINAL [None]
  - DYSGEUSIA [None]
  - EYELID PTOSIS [None]
  - GAIT DISTURBANCE [None]
  - HYPERLIPIDAEMIA [None]
  - HYPERTENSION [None]
  - ORAL TORUS [None]
  - OSTEOMYELITIS [None]
  - OSTEONECROSIS [None]
  - SYNCOPE [None]
  - TINEA PEDIS [None]
  - TOOTH FRACTURE [None]
